FAERS Safety Report 4710181-8 (Version None)
Quarter: 2005Q3

REPORT INFORMATION
  Report Type: 
  Country: None (occurrence: None)
  Receive Date: 20050708
  Receipt Date: 20050708
  Transmission Date: 20060218
  Serious: Yes (Disabling)
  Sender: FDA-Public Use
  Company Number: None

PATIENT
  Age: 75 Year
  Sex: Male
  Weight: 91.6266 kg

DRUGS (6)
  1. VIAGRA [Suspect]
     Indication: ERECTILE DYSFUNCTION
     Dosage: 50 MG PRN
     Dates: start: 19990101
  2. METOPROL [Concomitant]
  3. VIT C/E [Concomitant]
  4. VIGAMOX [Concomitant]
  5. ECONOPRED [Concomitant]
  6. ASPIRIN [Concomitant]

REACTIONS (2)
  - BLINDNESS UNILATERAL [None]
  - RETINAL VEIN OCCLUSION [None]
